FAERS Safety Report 5480160-4 (Version None)
Quarter: 2007Q4

REPORT INFORMATION
  Report Type: 
  Country: None (occurrence: None)
  Receive Date: 20071009
  Receipt Date: 20071002
  Transmission Date: 20080405
  Serious: Yes (Hospitalization, Other)
  Sender: FDA-Public Use
  Company Number: ES-BAYER-200715850GDS

PATIENT
  Age: 65 Year
  Sex: Female

DRUGS (6)
  1. ADALAT [Suspect]
     Indication: CREST SYNDROME
     Dosage: UNIT DOSE: 20 MG
     Route: 048
     Dates: start: 20020101
  2. TEGRETOL [Suspect]
     Indication: EPILEPSY
     Dosage: UNIT DOSE: 400 MG
     Route: 048
     Dates: start: 19900101
  3. PREVENCOR [Suspect]
     Indication: HYPERCHOLESTEROLAEMIA
     Route: 048
     Dates: start: 19970101
  4. ZONEGRAN [Suspect]
     Indication: EPILEPSY
     Dosage: UNIT DOSE: 150 MG
     Route: 048
     Dates: start: 20070312, end: 20070614
  5. COLCHICINE HOUDE [Suspect]
     Indication: CREST SYNDROME
     Dosage: UNIT DOSE: 1 MG
     Route: 048
     Dates: start: 20020101
  6. KEPPRA [Suspect]
     Indication: EPILEPSY
     Dosage: UNIT DOSE: 1000 MG
     Route: 048
     Dates: start: 20010101

REACTIONS (1)
  - NEUTROPENIA [None]
